FAERS Safety Report 16682877 (Version 1)
Quarter: 2019Q3

REPORT INFORMATION
  Report Type: Spontaneous
  Country: IT (occurrence: IT)
  Receive Date: 20190808
  Receipt Date: 20190808
  Transmission Date: 20191004
  Serious: Yes (Other)
  Sender: FDA-Public Use
  Company Number: PHHY2019IT182636

PATIENT
  Age: 52 Year
  Sex: Female
  Weight: 66 kg

DRUGS (1)
  1. AMOXICILLINA E ACIDO CLAVULANICO SANDOZ [Suspect]
     Active Substance: AMOXICILLIN\CLAVULANATE POTASSIUM
     Indication: ASTHMA
     Dosage: 2000 MG, QD
     Route: 041
     Dates: start: 20190725, end: 20190725

REACTIONS (3)
  - Condition aggravated [Recovered/Resolved]
  - Asthma [Recovered/Resolved]
  - Oxygen saturation decreased [Recovered/Resolved]

NARRATIVE: CASE EVENT DATE: 20190725
